FAERS Safety Report 7652363-1 (Version None)
Quarter: 2011Q3

REPORT INFORMATION
  Report Type: 
  Country: None (occurrence: None)
  Receive Date: 20110801
  Receipt Date: 20110801
  Transmission Date: 20111222
  Serious: Yes (Hospitalization)
  Sender: FDA-Public Use
  Company Number: None

PATIENT
  Age: 66 Year
  Sex: Female
  Weight: 85 kg

DRUGS (13)
  1. MULTAQ [Concomitant]
  2. COLACE [Concomitant]
  3. ALPRAZOLAM [Concomitant]
  4. PERCOCET [Concomitant]
  5. ASPIRIN [Concomitant]
  6. ATIVAN [Concomitant]
  7. TEMODAR [Concomitant]
  8. DECADRON [Concomitant]
  9. VYTORIN [Concomitant]
  10. KEPPRA [Concomitant]
  11. PRILOSEC [Concomitant]
  12. CARDIZEM [Concomitant]
  13. GLIADEL [Suspect]
     Indication: GLIOBLASTOMA MULTIFORME
     Dosage: GLIADEL WAFERS X1 IMPLANTED
     Dates: start: 20110601

REACTIONS (6)
  - CANDIDIASIS [None]
  - BRAIN OEDEMA [None]
  - PULMONARY CAVITATION [None]
  - CONVULSION [None]
  - INTRACRANIAL PRESSURE INCREASED [None]
  - SUBDURAL HYGROMA [None]
